FAERS Safety Report 4637464-4 (Version None)
Quarter: 2005Q2

REPORT INFORMATION
  Report Type: 
  Country: None (occurrence: None)
  Receive Date: 20050418
  Receipt Date: 20050304
  Transmission Date: 20051028
  Serious: Yes (Other)
  Sender: FDA-Public Use
  Company Number: US-AMGEN-US119087

PATIENT
  Sex: Female
  Weight: 65.4 kg

DRUGS (8)
  1. ENBREL [Suspect]
     Indication: RHEUMATOID ARTHRITIS
     Route: 058
     Dates: start: 19990201, end: 20050323
  2. MOBIC [Concomitant]
     Dates: start: 20041201
  3. FOSAMAX [Concomitant]
     Dates: start: 20021201
  4. METHOTREXATE [Concomitant]
     Dates: start: 19991001
  5. LORTAB [Concomitant]
     Dates: start: 20040901
  6. VIOXX [Concomitant]
     Dates: start: 20020101, end: 20041201
  7. LEUCOVORIN CALCIUM [Concomitant]
     Dates: start: 19991001
  8. BEXTRA [Concomitant]
     Dates: start: 20041001, end: 20041201

REACTIONS (2)
  - CARDIAC FAILURE CONGESTIVE [None]
  - VIRAL MYOCARDITIS [None]
